FAERS Safety Report 6864728-6 (Version None)
Quarter: 2010Q3

REPORT INFORMATION
  Report Type: 
  Country: None (occurrence: None)
  Receive Date: 20100721
  Receipt Date: 20080407
  Transmission Date: 20110219
  Serious: No
  Sender: FDA-Public Use
  Company Number: US-PFIZER INC-2008031828

PATIENT
  Sex: Female
  Weight: 92.1 kg

DRUGS (9)
  1. CHANTIX [Suspect]
     Indication: SMOKING CESSATION THERAPY
     Dosage: EVERY DAY
     Dates: start: 20080301
  2. CELEXA [Concomitant]
     Indication: DEPRESSION
  3. BENADRYL [Concomitant]
     Indication: PRURITUS
  4. VISTARIL [Concomitant]
     Indication: PRURITUS
  5. DIAZEPAM [Concomitant]
  6. SOMA [Concomitant]
  7. HYDROCODONE [Concomitant]
  8. ESTRADIOL [Concomitant]
  9. ANALGESICS [Concomitant]
     Indication: INTERVERTEBRAL DISC PROTRUSION

REACTIONS (7)
  - ABNORMAL BEHAVIOUR [None]
  - CLUMSINESS [None]
  - DISORIENTATION [None]
  - FEELING DRUNK [None]
  - MALAISE [None]
  - THINKING ABNORMAL [None]
  - WRONG DRUG ADMINISTERED [None]
